FAERS Safety Report 4642338-9 (Version None)
Quarter: 2005Q2

REPORT INFORMATION
  Report Type: 
  Country: None (occurrence: None)
  Receive Date: 20050420
  Receipt Date: 20050405
  Transmission Date: 20051028
  Serious: Yes (Hospitalization, Other)
  Sender: FDA-Public Use
  Company Number: 2005JP000753

PATIENT
  Sex: Male

DRUGS (9)
  1. PROTOPIC [Suspect]
     Indication: DERMATITIS ATOPIC
     Dosage: 0.10 %, TOPICAL
     Route: 061
     Dates: start: 20020626, end: 20050329
  2. CEFACLOR [Concomitant]
  3. SOLON (SOFALCONE) [Concomitant]
  4. LOCOID [Concomitant]
  5. GENTACIN (GENTAMICIN SULFATE) [Concomitant]
  6. BLEOMYCIN [Concomitant]
  7. FUCIDIN LEO (FUSIDATE SODIUM) [Concomitant]
  8. ALLEGRA [Concomitant]
  9. BLEOMYCIN SULFATE [Concomitant]

REACTIONS (1)
  - SQUAMOUS CELL CARCINOMA [None]
